FAERS Safety Report 11148704 (Version 2)
Quarter: 2015Q2

REPORT INFORMATION
  Report Type: Spontaneous
  Country: US (occurrence: US)
  Receive Date: 20150529
  Receipt Date: 20150601
  Transmission Date: 20150821
  Serious: Yes (Other)
  Sender: FDA-Public Use
  Company Number: US-BAYER-2015-279260

PATIENT
  Age: 62 Year
  Sex: Female

DRUGS (1)
  1. GADAVIST [Suspect]
     Active Substance: GADOBUTROL
     Indication: NUCLEAR MAGNETIC RESONANCE IMAGING BREAST
     Dosage: 7 ML, ONCE
     Dates: start: 20150522, end: 20150522

REACTIONS (5)
  - Flushing [None]
  - Hyperhidrosis [None]
  - Radial pulse abnormal [None]
  - Nausea [None]
  - Pulse abnormal [None]

NARRATIVE: CASE EVENT DATE: 20150522
